FAERS Safety Report 9442220 (Version 1)
Quarter: 2013Q3

REPORT INFORMATION
  Report Type: Spontaneous
  Country: US (occurrence: US)
  Receive Date: 20130806
  Receipt Date: 20130806
  Transmission Date: 20140515
  Serious: No
  Sender: FDA-Public Use
  Company Number: US-009507513-1307USA016879

PATIENT
  Sex: Male

DRUGS (1)
  1. FOSAMAX [Suspect]
     Indication: BONE LOSS
     Dosage: UNKNOWN
     Route: 048
     Dates: start: 201303

REACTIONS (1)
  - Musculoskeletal disorder [Unknown]
